FAERS Safety Report 14023155 (Version 1)
Quarter: 2017Q3

REPORT INFORMATION
  Report Type: Report from Study
  Country: US (occurrence: US)
  Receive Date: 20170929
  Receipt Date: 20170929
  Transmission Date: 20171128
  Serious: Yes (Other)
  Sender: FDA-Public Use
  Company Number: US-JNJFOC-20170922501

PATIENT
  Age: 64 Year
  Sex: Female
  Weight: 52.62 kg

DRUGS (3)
  1. ASA [Concomitant]
     Active Substance: ASPIRIN
     Route: 065
     Dates: start: 201706
  2. INVOKANA [Suspect]
     Active Substance: CANAGLIFLOZIN
     Indication: TYPE 2 DIABETES MELLITUS
     Route: 048
     Dates: start: 20170529
  3. PROTONIX [Concomitant]
     Active Substance: PANTOPRAZOLE SODIUM
     Indication: HIATUS HERNIA
     Route: 065

REACTIONS (9)
  - Dizziness [Not Recovered/Not Resolved]
  - Weight increased [Not Recovered/Not Resolved]
  - Limb deformity [Not Recovered/Not Resolved]
  - Blister [Recovered/Resolved]
  - Urine output increased [Not Recovered/Not Resolved]
  - Ear infection [Recovered/Resolved]
  - Optic ischaemic neuropathy [Not Recovered/Not Resolved]
  - Hypoaesthesia [Not Recovered/Not Resolved]
  - Hypotension [Not Recovered/Not Resolved]

NARRATIVE: CASE EVENT DATE: 20170529
